FAERS Safety Report 16202458 (Version 1)
Quarter: 2019Q2

REPORT INFORMATION
  Report Type: Spontaneous
  Country: US (occurrence: US)
  Receive Date: 20190416
  Receipt Date: 20190416
  Transmission Date: 20190711
  Serious: No
  Sender: FDA-Public Use
  Company Number: US-PFIZER INC-2018018691

PATIENT
  Age: 62 Year
  Sex: Male
  Weight: 91 kg

DRUGS (3)
  1. LYRICA [Suspect]
     Active Substance: PREGABALIN
     Indication: DIABETIC NEUROPATHY
     Dosage: 175 MG, 2X/DAY (STRENGTH: 75MG AND 100MG)
     Route: 048
     Dates: start: 2013
  2. LYRICA [Suspect]
     Active Substance: PREGABALIN
     Indication: HERPES ZOSTER
  3. LYRICA [Suspect]
     Active Substance: PREGABALIN
     Indication: PAIN

REACTIONS (4)
  - Memory impairment [Unknown]
  - Visual impairment [Unknown]
  - Drug ineffective [Unknown]
  - Balance disorder [Unknown]
